FAERS Safety Report 5822425-X (Version None)
Quarter: 2008Q3

REPORT INFORMATION
  Report Type: 
  Country: None (occurrence: None)
  Receive Date: 20080725
  Receipt Date: 20080326
  Transmission Date: 20090109
  Serious: No
  Sender: FDA-Public Use
  Company Number: US-AMGEN-KDL267238

PATIENT
  Sex: Male
  Weight: 75.8 kg

DRUGS (9)
  1. PROCRIT [Suspect]
     Indication: RENAL FAILURE CHRONIC
     Dates: end: 20080306
  2. LISINOPRIL [Concomitant]
  3. METOPROLOL TARTRATE [Concomitant]
  4. HYDROCHLOROTHIAZIDE [Concomitant]
  5. SIMVASTATIN [Concomitant]
  6. PYRIDOXINE [Concomitant]
  7. ASPIRIN [Concomitant]
  8. IRON [Concomitant]
  9. FOLIC ACID [Concomitant]

REACTIONS (5)
  - ADVERSE DRUG REACTION [None]
  - ASTHENIA [None]
  - BLOOD COUNT ABNORMAL [None]
  - DYSKINESIA [None]
  - TREMOR [None]
